FAERS Safety Report 5468391-0 (Version None)
Quarter: 2007Q3

REPORT INFORMATION
  Report Type: 
  Country: None (occurrence: None)
  Receive Date: 20070926
  Receipt Date: 20070907
  Transmission Date: 20080115
  Serious: Yes (Hospitalization)
  Sender: FDA-Public Use
  Company Number: IT-ROCHE-515928

PATIENT
  Age: 82 Year
  Sex: Female

DRUGS (9)
  1. TORADOL [Suspect]
     Indication: DRUG USE FOR UNKNOWN INDICATION
     Dosage: DOSAGE REPORTED: 30 DROPS ONCE DAILY.
     Route: 048
     Dates: start: 20070727, end: 20070730
  2. TACHIDOL [Concomitant]
     Dosage: STRENGTH REPORTED: 500 + 30 MG SACHETS.
     Route: 048
  3. LANOXIN [Concomitant]
  4. PRETERAX [Concomitant]
  5. MEGESTIL [Concomitant]
     Route: 048
  6. TORVAST [Concomitant]
  7. ASPIRIN [Concomitant]
     Route: 048
  8. NEXIUM [Concomitant]
     Route: 048
  9. PERFALGAN [Concomitant]

REACTIONS (3)
  - AGITATION [None]
  - CONFUSIONAL STATE [None]
  - ERYTHEMA [None]
